FAERS Safety Report 17205488 (Version 1)
Quarter: 2019Q4

REPORT INFORMATION
  Report Type: Spontaneous
  Country: US (occurrence: US)
  Receive Date: 20191227
  Receipt Date: 20191227
  Transmission Date: 20200122
  Serious: No
  Sender: FDA-Public Use
  Company Number: US-UNITED THERAPEUTICS-UNT-2019-021309

PATIENT
  Sex: Female
  Weight: 96.15 kg

DRUGS (1)
  1. REMODULIN [Suspect]
     Active Substance: TREPROSTINIL
     Indication: PULMONARY ARTERIAL HYPERTENSION
     Dosage: 0.090 ?G/KG, CONTINUING
     Route: 041
     Dates: start: 20180920

REACTIONS (8)
  - Chromaturia [Unknown]
  - Dry skin [Unknown]
  - Constipation [Unknown]
  - Dehydration [Unknown]
  - Dry eye [Unknown]
  - Weight increased [Unknown]
  - Fluid retention [Unknown]
  - Aptyalism [Unknown]
